FAERS Safety Report 13419420 (Version 1)
Quarter: 2017Q2

REPORT INFORMATION
  Report Type: Spontaneous
  Country: US (occurrence: US)
  Receive Date: 20170407
  Receipt Date: 20170407
  Transmission Date: 20170830
  Serious: No
  Sender: FDA-Public Use
  Company Number: US-TEVA-753532ACC

PATIENT
  Age: 62 Year
  Sex: Female

DRUGS (6)
  1. COPAXONE [Suspect]
     Active Substance: GLATIRAMER ACETATE
     Indication: MULTIPLE SCLEROSIS
     Route: 058
     Dates: start: 20120511
  2. LOVASTATIN. [Concomitant]
     Active Substance: LOVASTATIN
  3. TOVIAZ [Concomitant]
     Active Substance: FESOTERODINE FUMARATE
  4. MULTIVITAMIS [Concomitant]
  5. VITAMIN D [Concomitant]
     Active Substance: CHOLECALCIFEROL
  6. GLUCOSAMINE [Concomitant]
     Active Substance: GLUCOSAMINE

REACTIONS (1)
  - Fall [Unknown]

NARRATIVE: CASE EVENT DATE: 20170303
